FAERS Safety Report 17716949 (Version 4)
Quarter: 2020Q2

REPORT INFORMATION
  Report Type: Report from Study
  Country: DE (occurrence: DE)
  Receive Date: 20200428
  Receipt Date: 20200521
  Transmission Date: 20200714
  Serious: Yes (Other)
  Sender: FDA-Public Use
  Company Number: DE-BRISTOL-MYERS SQUIBB COMPANY-BMS-2020-033853

PATIENT
  Age: 16 Year
  Sex: Female

DRUGS (5)
  1. DASATINIB. [Suspect]
     Active Substance: DASATINIB
     Indication: PRODUCT USED FOR UNKNOWN INDICATION
     Dosage: 80 MG/DAY IN WEEK FIVE OF THERAPY, DASATINIB  WAS TAKEN TAKEN EVERY EVENING
     Route: 048
  2. CERITINIB [Suspect]
     Active Substance: CERITINIB
     Indication: PRODUCT USED FOR UNKNOWN INDICATION
     Dosage: 300 MILLIGRAM, 150 MG, 2X PER DAY.
     Route: 048
  3. CERITINIB [Suspect]
     Active Substance: CERITINIB
     Indication: PRODUCT USED FOR UNKNOWN INDICATION
     Dosage: 450 MILLIGRAM, QD
     Route: 048
  4. DASATINIB. [Suspect]
     Active Substance: DASATINIB
     Indication: OSTEOSARCOMA
     Dosage: 100 MILLIGRAM, QD
     Route: 048
  5. CERITINIB [Suspect]
     Active Substance: CERITINIB
     Indication: OSTEOSARCOMA
     Dosage: 150 MILLIGRAM ON DAY 10, CERITINIB  WAS TAKEN EVERY MORNING; DOSE INCREASED WEEKLY (INITIAL DOSE 150
     Route: 048

REACTIONS (8)
  - Drug interaction [Unknown]
  - Leukopenia [Recovered/Resolved]
  - Diarrhoea [Recovered/Resolved]
  - Rash [Recovered/Resolved]
  - Tumour necrosis [Unknown]
  - Thrombocytopenia [Recovered/Resolved]
  - Intentional product use issue [Unknown]
  - Blood lactate dehydrogenase increased [Unknown]
